FAERS Safety Report 7767406-4 (Version None)
Quarter: 2011Q3

REPORT INFORMATION
  Report Type: 
  Country: None (occurrence: None)
  Receive Date: 20110922
  Receipt Date: 20100823
  Transmission Date: 20111222
  Serious: No
  Sender: FDA-Public Use
  Company Number: US-ASTRAZENECA-2010SE39667

PATIENT
  Age: 49 Year
  Sex: Female
  Weight: 64.4 kg

DRUGS (3)
  1. SEROQUEL [Suspect]
     Route: 048
     Dates: end: 20100801
  2. SEROQUEL [Suspect]
     Indication: INSOMNIA
     Route: 048
  3. SIMVASTATIN [Concomitant]
     Dates: end: 20100801

REACTIONS (12)
  - SPEECH DISORDER [None]
  - WEIGHT DECREASED [None]
  - IRRITABILITY [None]
  - MUSCLE SPASMS [None]
  - MUSCLE TWITCHING [None]
  - DRUG DOSE OMISSION [None]
  - INSOMNIA [None]
  - VIBRATORY SENSE INCREASED [None]
  - PALPITATIONS [None]
  - WEIGHT INCREASED [None]
  - HYPERTENSION [None]
  - HOT FLUSH [None]
